FAERS Safety Report 8174712-0 (Version None)
Quarter: 2012Q1

REPORT INFORMATION
  Report Type: 
  Country: None (occurrence: None)
  Receive Date: 20120229
  Receipt Date: 20110222
  Transmission Date: 20120608
  Serious: Yes (Other)
  Sender: FDA-Public Use
  Company Number: JP-GLAXOSMITHKLINE-B0702112A

PATIENT
  Sex: Female

DRUGS (10)
  1. LAMICTAL [Suspect]
     Dosage: 50MG PER DAY
     Route: 048
     Dates: start: 20110203, end: 20110209
  2. DEPAS [Concomitant]
     Indication: INSOMNIA
     Dosage: 3MG PER DAY
     Route: 048
     Dates: start: 20101126, end: 20110214
  3. RISPERDAL [Concomitant]
     Dosage: 25MG TWO TIMES PER WEEK
     Route: 030
     Dates: start: 20110129, end: 20110214
  4. MONTELUKAST SODIUM [Concomitant]
     Route: 048
  5. AKINETON [Concomitant]
     Indication: PARKINSON'S DISEASE
     Dosage: 4MG PER DAY
     Route: 048
     Dates: start: 20101130, end: 20110214
  6. LAMICTAL [Suspect]
     Dosage: 75MG PER DAY
     Route: 048
     Dates: start: 20110210, end: 20110214
  7. CLONAZEPAM [Concomitant]
     Dosage: 2MG PER DAY
     Route: 048
     Dates: start: 20110113, end: 20110214
  8. LAMICTAL [Suspect]
     Indication: DEPRESSION
     Dosage: 25MG PER DAY
     Route: 048
     Dates: start: 20110127, end: 20110202
  9. ADVAIR DISKUS 100/50 [Concomitant]
     Route: 055
  10. PHENOBARBITAL TAB [Concomitant]
     Indication: INSOMNIA
     Dosage: 2IUAX PER DAY
     Route: 048
     Dates: start: 20110129, end: 20110214

REACTIONS (20)
  - STEVENS-JOHNSON SYNDROME [None]
  - ENANTHEMA [None]
  - PYREXIA [None]
  - RASH [None]
  - LYMPHOCYTIC INFILTRATION [None]
  - SKIN EROSION [None]
  - ORAL MUCOSA EROSION [None]
  - LIVER DISORDER [None]
  - BLOOD ALKALINE PHOSPHATASE INCREASED [None]
  - C-REACTIVE PROTEIN INCREASED [None]
  - ASPARTATE AMINOTRANSFERASE INCREASED [None]
  - ALANINE AMINOTRANSFERASE INCREASED [None]
  - ORAL DISORDER [None]
  - DECREASED APPETITE [None]
  - BLOOD LACTATE DEHYDROGENASE INCREASED [None]
  - SKIN NECROSIS [None]
  - LIP EROSION [None]
  - ERYTHEMA [None]
  - SKIN DEGENERATIVE DISORDER [None]
  - GAMMA-GLUTAMYLTRANSFERASE INCREASED [None]
